FAERS Safety Report 9785116 (Version 4)
Quarter: 2014Q1

REPORT INFORMATION
  Report Type: Spontaneous
  Country: US (occurrence: US)
  Receive Date: 20131227
  Receipt Date: 20140117
  Transmission Date: 20141002
  Serious: Yes (Hospitalization, Other)
  Sender: FDA-Public Use
  Company Number: US-CELGENEUS-163-21880-13110094

PATIENT
  Age: 54 Year
  Sex: Female

DRUGS (4)
  1. REVLIMID [Suspect]
     Indication: PLASMA CELL MYELOMA
     Dosage: 10 MILLIGRAM
     Route: 048
     Dates: start: 201101
  2. REVLIMID [Suspect]
     Dosage: 25 MILLIGRAM
     Route: 048
     Dates: start: 201108
  3. DEXAMETHASONE [Concomitant]
     Indication: PRODUCT USED FOR UNKNOWN INDICATION
     Dosage: 20 MILLIGRAM
     Route: 065
  4. VELCADE [Concomitant]
     Indication: CHEMOTHERAPY
     Route: 065

REACTIONS (6)
  - Haemorrhage [Unknown]
  - Anaemia [Not Recovered/Not Resolved]
  - Clavicle fracture [Recovering/Resolving]
  - Fall [Recovered/Resolved]
  - Abscess [Recovering/Resolving]
  - Cellulitis [Unknown]
